FAERS Safety Report 12369003 (Version 1)
Quarter: 2016Q2

REPORT INFORMATION
  Report Type: Spontaneous
  Country: GB (occurrence: GB)
  Receive Date: 20160513
  Receipt Date: 20160513
  Transmission Date: 20160815
  Serious: Yes (Hospitalization)
  Sender: FDA-Public Use
  Company Number: GB-PFIZER INC-2016251041

PATIENT
  Age: 59 Year
  Sex: Female

DRUGS (12)
  1. IVABRADINE [Concomitant]
     Active Substance: IVABRADINE
  2. ATORVASTATIN [Concomitant]
     Active Substance: ATORVASTATIN
  3. RIVAROXABAN [Concomitant]
     Active Substance: RIVAROXABAN
  4. BUMETANIDE. [Concomitant]
     Active Substance: BUMETANIDE
  5. RAMIPRIL. [Concomitant]
     Active Substance: RAMIPRIL
  6. PREGABALIN. [Suspect]
     Active Substance: PREGABALIN
     Indication: NEURALGIA
     Dosage: 75 MG, 2X/DAY
     Route: 048
     Dates: start: 20160401, end: 20160425
  7. BISOPROLOL [Concomitant]
     Active Substance: BISOPROLOL
  8. SPIRONOLACTONE. [Concomitant]
     Active Substance: SPIRONOLACTONE
  9. COCODAMOL [Concomitant]
     Active Substance: ACETAMINOPHEN\CODEINE PHOSPHATE
  10. DOXAZOSIN [Concomitant]
     Active Substance: DOXAZOSIN\DOXAZOSIN MESYLATE
  11. TRAMADOL. [Concomitant]
     Active Substance: TRAMADOL
  12. AMLODIPINE [Concomitant]
     Active Substance: AMLODIPINE BESYLATE
     Dosage: UNK

REACTIONS (1)
  - Ballismus [Recovered/Resolved]

NARRATIVE: CASE EVENT DATE: 20160423
